FAERS Safety Report 15470994 (Version 1)
Quarter: 2018Q4

REPORT INFORMATION
  Report Type: Spontaneous
  Country: NL (occurrence: NL)
  Receive Date: 20181006
  Receipt Date: 20181006
  Transmission Date: 20190205
  Serious: Yes (Other)
  Sender: FDA-Public Use
  Company Number: NL-AUROBINDO-AUR-APL-2018-048415

PATIENT
  Age: 69 Year
  Sex: Female
  Weight: 92 kg

DRUGS (1)
  1. HYDROCHLOROTHIAZIDE TABLETS 12.5 MG TABLETS [Suspect]
     Active Substance: HYDROCHLOROTHIAZIDE
     Indication: FLUID RETENTION
     Dosage: 12 MILLIGRAM, ONCE A DAY, 1X DAAGS 1 TABLET
     Route: 065
     Dates: start: 20040907, end: 20180901

REACTIONS (1)
  - Pulmonary embolism [Recovered/Resolved]

NARRATIVE: CASE EVENT DATE: 20180313
